FAERS Safety Report 5768248-1 (Version None)
Quarter: 2008Q2

REPORT INFORMATION
  Report Type: 
  Country: None (occurrence: None)
  Receive Date: 20080612
  Receipt Date: 20080416
  Transmission Date: 20081010
  Serious: No
  Sender: FDA-Public Use
  Company Number: US-ABBOTT-07P-163-0378798-00

PATIENT
  Sex: Female
  Weight: 54.026 kg

DRUGS (11)
  1. HUMIRA [Suspect]
     Indication: RHEUMATOID ARTHRITIS
     Route: 058
     Dates: start: 20060701, end: 20070501
  2. HUMIRA [Suspect]
     Route: 058
     Dates: start: 20070704, end: 20071001
  3. HUMIRA [Suspect]
     Route: 058
     Dates: start: 20080410
  4. FEXOFENADINE [Concomitant]
     Indication: SEASONAL ALLERGY
     Route: 048
  5. BIRTH CONTROL PILLS [Concomitant]
     Indication: CONTRACEPTION
  6. METHYLPREDNISOLONE [Concomitant]
     Indication: ARTHRITIS
     Dates: start: 20080201
  7. TOPIRAMATE [Concomitant]
     Indication: MIGRAINE
     Route: 048
     Dates: start: 20071201
  8. KARIVA MIRCETTE [Concomitant]
     Indication: ORAL CONTRACEPTION
     Route: 048
  9. KARIVA MIRCETTE [Concomitant]
     Indication: MENOPAUSAL SYMPTOMS
  10. RIZATRIPTAN BENZOATE [Concomitant]
     Indication: MIGRAINE
     Route: 048
  11. FLUTICASONE PROPIONATE [Concomitant]
     Indication: SEASONAL ALLERGY
     Route: 045

REACTIONS (7)
  - DRUG DOSE OMISSION [None]
  - FATIGUE [None]
  - HEADACHE [None]
  - HYPOAESTHESIA [None]
  - MADAROSIS [None]
  - MIGRAINE [None]
  - PARAESTHESIA [None]
